FAERS Safety Report 6110482-5 (Version None)
Quarter: 2009Q1

REPORT INFORMATION
  Report Type: 
  Country: None (occurrence: None)
  Receive Date: 20090310
  Receipt Date: 20090227
  Transmission Date: 20090719
  Serious: Yes (Hospitalization)
  Sender: FDA-Public Use
  Company Number: PHHY2009JP06163

PATIENT
  Age: 64 Year
  Sex: Male

DRUGS (2)
  1. CYCLOSPORINE [Suspect]
     Indication: ILEUS
     Dosage: 125 MG/DAY
     Route: 048
  2. PREDNISOLONE [Suspect]
     Indication: ILEUS
     Dosage: 5 MG/DAY
     Route: 048

REACTIONS (6)
  - ATRIAL FIBRILLATION [None]
  - COMPUTERISED TOMOGRAM ABNORMAL [None]
  - LUNG ADENOCARCINOMA [None]
  - LUNG INFILTRATION [None]
  - PALPITATIONS [None]
  - VERTIGO [None]
